FAERS Safety Report 21998518 (Version 2)
Quarter: 2023Q2

REPORT INFORMATION
  Report Type: Spontaneous
  Country: TR (occurrence: TR)
  Receive Date: 20230216
  Receipt Date: 20230410
  Transmission Date: 20230721
  Serious: Yes (Life-Threatening, Hospitalization, Other)
  Sender: FDA-Public Use
  Company Number: TR-CELGENE-TUR-20211000603

PATIENT
  Age: 72 Year
  Sex: Male
  Weight: 72 kg

DRUGS (33)
  1. AZACITIDINE [Suspect]
     Active Substance: AZACITIDINE
     Indication: Myelodysplastic syndrome
     Dosage: FREQUENCY TEXT: 7 DAYS WITHIN THE FIRST 9 DAYS PER 28 D?75 MILLIGRAM/SQ. METER
     Route: 058
     Dates: start: 20210426, end: 20210914
  2. AZACITIDINE [Suspect]
     Active Substance: AZACITIDINE
     Dosage: FREQUENCY TEXT: 7 DAYS WITHIN THE FIRST 9 DAYS PER 28 D?75 MILLIGRAM/SQ. METER
     Route: 058
     Dates: start: 20211108, end: 20211217
  3. AZACITIDINE [Suspect]
     Active Substance: AZACITIDINE
     Dates: end: 20220425
  4. VENETOCLAX [Suspect]
     Active Substance: VENETOCLAX
     Indication: Myelodysplastic syndrome
     Dosage: 400 MILLIGRAM
     Route: 048
     Dates: start: 20210426, end: 20210606
  5. VENETOCLAX [Suspect]
     Active Substance: VENETOCLAX
     Dosage: 200 MILLIGRAM
     Route: 048
     Dates: start: 20210618, end: 20210919
  6. VENETOCLAX [Suspect]
     Active Substance: VENETOCLAX
     Dosage: 200 MILLIGRAM
     Route: 048
     Dates: start: 20211108, end: 20211219
  7. VENETOCLAX [Suspect]
     Active Substance: VENETOCLAX
     Dates: end: 20220425
  8. VALTREX [Concomitant]
     Active Substance: VALACYCLOVIR HYDROCHLORIDE
     Indication: Infection prophylaxis
     Dosage: 500 MILLIGRAM
     Route: 048
  9. Tanflex Gargara [Concomitant]
     Indication: Prophylaxis
     Dosage: 45 MILLIGRAM
     Route: 048
     Dates: start: 20210426
  10. FLUCONAZOLE [Concomitant]
     Active Substance: FLUCONAZOLE
     Indication: Infection prophylaxis
     Dosage: 100 MILLIGRAM
     Route: 048
     Dates: start: 20210426, end: 20211004
  11. CARVEDILOL [Concomitant]
     Active Substance: CARVEDILOL
     Indication: Myocardial infarction
     Dosage: 6.25 MILLIGRAM
     Route: 048
     Dates: start: 20210410
  12. DIGOXIN [Concomitant]
     Active Substance: DIGOXIN
     Indication: Myocardial infarction
     Dosage: .25 MILLIGRAM
     Route: 048
     Dates: start: 20210410
  13. INSPRA [Concomitant]
     Active Substance: EPLERENONE
     Indication: Myocardial infarction
     Dosage: 25 MILLIGRAM
     Route: 048
     Dates: start: 20210410
  14. PANTOPRAZOLE SODIUM [Concomitant]
     Active Substance: PANTOPRAZOLE SODIUM
     Indication: Prophylaxis
     Dosage: 40 MILLIGRAM
     Route: 048
     Dates: start: 20210410
  15. TAZERACIN [Concomitant]
     Indication: Neutropenia
     Dosage: 13.5 GRAM
     Route: 042
     Dates: start: 20210819, end: 20210827
  16. TAZERACIN [Concomitant]
     Dosage: 13.5 GRAM
     Route: 042
     Dates: start: 20210907, end: 20210917
  17. TAZERACIN [Concomitant]
     Dosage: 13.5 GRAM
     Route: 042
     Dates: start: 20210927, end: 20210928
  18. KYTRIL [Concomitant]
     Active Substance: GRANISETRON HYDROCHLORIDE
     Indication: Premedication
     Dosage: FREQUENCY TEXT: ON DAYS 1 AS REQUIRED?3 MILLIGRAM
     Route: 042
     Dates: start: 20210426
  19. ACETAMINOPHEN\CAFFEINE\CODEINE PHOSPHATE [Concomitant]
     Active Substance: ACETAMINOPHEN\CAFFEINE\CODEINE PHOSPHATE
     Indication: Product used for unknown indication
     Dosage: FREQUENCY TEXT: NOT PROVIDED
  20. BUDICORT [Concomitant]
     Indication: Product used for unknown indication
     Dosage: FREQUENCY TEXT: NOT PROVIDED
  21. FUROSEMIDE [Concomitant]
     Active Substance: FUROSEMIDE
     Indication: Product used for unknown indication
     Dosage: FREQUENCY TEXT: NOT PROVIDED
  22. AKLOVIR [Concomitant]
     Indication: Product used for unknown indication
     Dosage: FREQUENCY TEXT: NOT PROVIDED
  23. NYSTATIN [Concomitant]
     Active Substance: NYSTATIN
     Indication: Product used for unknown indication
     Dosage: FREQUENCY TEXT: NOT PROVIDED
  24. TRANEXAMIC ACID [Concomitant]
     Active Substance: TRANEXAMIC ACID
     Indication: Haemorrhage
     Dosage: FREQUENCY TEXT: NOT PROVIDED
     Dates: start: 20210922, end: 20210928
  25. HIRUDOID FORTE [Concomitant]
     Indication: Subdural haemorrhage
     Dosage: FREQUENCY TEXT: 1 AS REQUIRED
     Route: 061
     Dates: start: 20210820
  26. BACTROBAN [Concomitant]
     Active Substance: MUPIROCIN\MUPIROCIN CALCIUM
     Indication: Rash
     Dosage: FREQUENCY TEXT: 1 AS REQUIRED
     Route: 061
     Dates: start: 20210910
  27. COSMETICS [Concomitant]
     Active Substance: COSMETICS
     Indication: Rash
     Route: 061
     Dates: start: 20210910
  28. Gronosit [Concomitant]
     Indication: Premedication
     Dosage: UNIT DOSE : 3 MILLIGRAM/MILLILITERS?FREQUENCY TEXT: 1 AS REQUIRED
     Route: 042
     Dates: start: 20210910
  29. Levmont TB [Concomitant]
     Indication: Infection prophylaxis
     Dosage: 5/10MG
     Dates: start: 20210901, end: 20211101
  30. 3M CAVILON ANTIFUNGAL [Concomitant]
     Active Substance: MICONAZOLE NITRATE
     Indication: Supportive care
     Dates: start: 20210426
  31. NEXIUM I.V. [Concomitant]
     Active Substance: ESOMEPRAZOLE SODIUM
     Indication: Neutropenia
     Dosage: EVERY DAY
     Dates: start: 20210820, end: 20210906
  32. LACTULOSE [Concomitant]
     Active Substance: LACTULOSE
     Indication: Prophylaxis
     Dosage: EVERY DAY
     Dates: start: 20210901, end: 20210907
  33. LEVONAT [Concomitant]
     Indication: Infection prophylaxis
     Dosage: EVERY DAY
     Dates: start: 20210426, end: 20210908

REACTIONS (3)
  - Thrombocytopenia [Not Recovered/Not Resolved]
  - Bacterial sepsis [Recovered/Resolved]
  - Pneumonia [Recovered/Resolved]

NARRATIVE: CASE EVENT DATE: 20210927
